FAERS Safety Report 4558003-2 (Version None)
Quarter: 2005Q1

REPORT INFORMATION
  Report Type: 
  Country: None (occurrence: None)
  Receive Date: 20050121
  Receipt Date: 20040428
  Transmission Date: 20050727
  Serious: No
  Sender: FDA-Public Use
  Company Number: US-BRISTOL-MYERS SQUIBB COMPANY-12573341

PATIENT
  Age: 51 Year
  Sex: Female

DRUGS (5)
  1. SERZONE [Suspect]
     Indication: DEPRESSION
     Route: 048
     Dates: start: 19981028
  2. SYNTHROID [Concomitant]
  3. CELEBREX [Concomitant]
  4. MEVACOR [Concomitant]
  5. RESTORIL [Concomitant]

REACTIONS (2)
  - ALANINE AMINOTRANSFERASE INCREASED [None]
  - DIARRHOEA [None]
